FAERS Safety Report 11887677 (Version 2)
Quarter: 2016Q1

REPORT INFORMATION
  Report Type: Spontaneous
  Country: US (occurrence: US)
  Receive Date: 20160105
  Receipt Date: 20160121
  Transmission Date: 20160526
  Serious: Yes (Hospitalization)
  Sender: FDA-Public Use
  Company Number: US-BEH-2015057328

PATIENT
  Age: 73 Year
  Sex: Female
  Weight: 73 kg

DRUGS (24)
  1. HIZENTRA [Suspect]
     Active Substance: HUMAN IMMUNOGLOBULIN G
     Indication: IMMUNODEFICIENCY COMMON VARIABLE
     Dosage: 1 GM 5 ML VIAL
     Route: 058
  2. XANAX [Concomitant]
     Active Substance: ALPRAZOLAM
  3. PROBIOTIC [Concomitant]
     Active Substance: PROBIOTICS NOS
  4. EPIPEN [Concomitant]
     Active Substance: EPINEPHRINE
  5. RELPAX [Concomitant]
     Active Substance: ELETRIPTAN HYDROBROMIDE
  6. NASONEX [Concomitant]
     Active Substance: MOMETASONE FUROATE
  7. ASPIRIN. [Concomitant]
     Active Substance: ASPIRIN
  8. METOPROLOL TARTRATE. [Concomitant]
     Active Substance: METOPROLOL TARTRATE
  9. LMX [Concomitant]
     Active Substance: LIDOCAINE
  10. ALEVE [Concomitant]
     Active Substance: NAPROXEN SODIUM
  11. AMOXICILLIN. [Concomitant]
     Active Substance: AMOXICILLIN
  12. TOPIRAMATE. [Concomitant]
     Active Substance: TOPIRAMATE
  13. GABAPENTIN. [Concomitant]
     Active Substance: GABAPENTIN
  14. CYCLOBENZAPRINE [Concomitant]
     Active Substance: CYCLOBENZAPRINE
  15. ALBUTEROL. [Concomitant]
     Active Substance: ALBUTEROL
  16. HIZENTRA [Suspect]
     Active Substance: HUMAN IMMUNOGLOBULIN G
     Dosage: 10 GM 50 ML VIALS
     Route: 058
  17. ADVAIR HFA [Concomitant]
     Active Substance: FLUTICASONE PROPIONATE\SALMETEROL XINAFOATE
  18. LEVOTHYROXINE. [Concomitant]
     Active Substance: LEVOTHYROXINE
  19. PRAVASTATIN [Concomitant]
     Active Substance: PRAVASTATIN\PRAVASTATIN SODIUM
  20. LEXAPRO [Concomitant]
     Active Substance: ESCITALOPRAM OXALATE
  21. VITAMIN D [Concomitant]
     Active Substance: CHOLECALCIFEROL
  22. DIPHENHYDRAMINE. [Concomitant]
     Active Substance: DIPHENHYDRAMINE
  23. CLONAZEPAM. [Concomitant]
     Active Substance: CLONAZEPAM
  24. OXYCODONE - ACETAMINOPHEN [Concomitant]
     Active Substance: ACETAMINOPHEN\OXYCODONE HYDROCHLORIDE

REACTIONS (3)
  - Fall [Unknown]
  - Contusion [Unknown]
  - Joint injury [Unknown]

NARRATIVE: CASE EVENT DATE: 20151217
